FAERS Safety Report 4692516-8 (Version None)
Quarter: 2005Q3

REPORT INFORMATION
  Report Type: 
  Country: None (occurrence: None)
  Receive Date: 20050613
  Receipt Date: 20050516
  Transmission Date: 20060218
  Serious: No
  Sender: FDA-Public Use
  Company Number: 2005-00664

PATIENT
  Age: 58 Year
  Sex: Female
  Weight: 58.5 kg

DRUGS (6)
  1. BORTEZOMIB [Suspect]
     Dosage: 2.00 MG, INTRAVENOUS
     Route: 042
     Dates: start: 20050110, end: 20050307
  2. LOPRESSOR [Concomitant]
  3. COUMADIN [Concomitant]
  4. MS CONTIN [Concomitant]
  5. ANZEMET (DOLASETRON MESILATE) [Concomitant]
  6. COMPAZINE [Concomitant]

REACTIONS (3)
  - DIARRHOEA [None]
  - NAUSEA [None]
  - VOMITING PROJECTILE [None]
